FAERS Safety Report 21046258 (Version 3)
Quarter: 2022Q3

REPORT INFORMATION
  Report Type: Other
  Country: GB (occurrence: GB)
  Receive Date: 20220706
  Receipt Date: 20220720
  Transmission Date: 20221027
  Serious: Yes (Other)
  Sender: FDA-Public Use
  Company Number: GB-TAKEDA-2022TUS041480

PATIENT

DRUGS (9)
  1. DEXAMETHASONE [Suspect]
     Active Substance: DEXAMETHASONE
     Indication: Product used for unknown indication
     Dosage: 10 MILLIGRAM;
     Route: 065
     Dates: end: 20220525
  2. DEXAMETHASONE [Suspect]
     Active Substance: DEXAMETHASONE
     Dosage: DOSE RE-INTRODUCED
     Route: 065
     Dates: start: 20220603
  3. DEXAMETHASONE [Suspect]
     Active Substance: DEXAMETHASONE
     Dosage: 1 {DF}, FREQ: ON DAYS 1, 8, 15 AND 22
     Route: 065
     Dates: start: 20220603
  4. ACYCLOVIR [Suspect]
     Active Substance: ACYCLOVIR
     Indication: Product used for unknown indication
     Dosage: 400 MILLIGRAM, BID
     Route: 065
  5. NINLARO [Suspect]
     Active Substance: IXAZOMIB CITRATE
     Indication: Product used for unknown indication
     Dosage: 2.3 MILLIGRAM, 1/WEEK
     Route: 065
     Dates: end: 20220525
  6. NINLARO [Suspect]
     Active Substance: IXAZOMIB CITRATE
     Dosage: DOSE RE-INTRODUCED
     Route: 065
     Dates: start: 20220603
  7. REVLIMID [Suspect]
     Active Substance: LENALIDOMIDE
     Indication: Product used for unknown indication
     Dosage: 10 MILLIGRAM, QD
     Route: 065
     Dates: end: 20220525
  8. REVLIMID [Suspect]
     Active Substance: LENALIDOMIDE
     Dosage: DOSE RE-INTRODUCED
     Route: 065
     Dates: start: 20220603
  9. REVLIMID [Suspect]
     Active Substance: LENALIDOMIDE
     Dosage: 1 {DF}, FREQ: DAILY
     Route: 065
     Dates: start: 20220603

REACTIONS (3)
  - Lower respiratory tract infection [Unknown]
  - Rhinitis [Unknown]
  - Pharyngitis [Unknown]

NARRATIVE: CASE EVENT DATE: 20220525
